FAERS Safety Report 4950770-9 (Version None)
Quarter: 2006Q1

REPORT INFORMATION
  Report Type: 
  Country: None (occurrence: None)
  Receive Date: 20060321
  Receipt Date: 20060321
  Transmission Date: 20060701
  Serious: Yes (Death)
  Sender: FDA-Public Use
  Company Number: None

PATIENT
  Age: 48 Year
  Sex: Male
  Weight: 53.0709 kg

DRUGS (6)
  1. ERLOTINIB 150 MG [Suspect]
     Indication: NON-SMALL CELL LUNG CANCER
     Dosage: 150 MG QD PO
     Route: 048
     Dates: start: 20060224, end: 20060312
  2. DIGOXIN [Suspect]
     Indication: NON-SMALL CELL LUNG CANCER
     Dosage: 0.25 MG QD PO
     Route: 048
     Dates: start: 20060224, end: 20060312
  3. XANAX [Concomitant]
  4. HALCION [Concomitant]
  5. LORTAB [Concomitant]
  6. DECADRON SRC [Concomitant]

REACTIONS (2)
  - PAIN [None]
  - PULMONARY HAEMORRHAGE [None]
